FAERS Safety Report 25958095 (Version 1)
Quarter: 2025Q4

REPORT INFORMATION
  Report Type: Spontaneous
  Country: KR (occurrence: KR)
  Receive Date: 20251024
  Receipt Date: 20251024
  Transmission Date: 20260119
  Serious: Yes (Hospitalization)
  Sender: NOVO NORDISK
  Company Number: KR-NOVOPROD-1217665

PATIENT
  Age: 18 Year
  Sex: Female
  Weight: 103.8 kg

DRUGS (4)
  1. SAXENDA [Suspect]
     Active Substance: LIRAGLUTIDE
     Indication: Product used for unknown indication
     Dosage: UNK, QD (100 DAYS)
     Dates: start: 20221122, end: 20221205
  2. SAXENDA [Suspect]
     Active Substance: LIRAGLUTIDE
     Dosage: UNK, QD (100 DAYS)
     Dates: start: 20221206, end: 20221219
  3. SAXENDA [Suspect]
     Active Substance: LIRAGLUTIDE
     Dosage: UNK, QD (100 DAYS)
     Dates: start: 20221220, end: 20230110
  4. ACETAMINOPHEN [Suspect]
     Active Substance: ACETAMINOPHEN
     Indication: Product used for unknown indication
     Dosage: 60 DF
     Dates: start: 20230307, end: 20230307

REACTIONS (5)
  - Suicide attempt [Unknown]
  - Affective disorder [Unknown]
  - Urticaria [Unknown]
  - Abdominal discomfort [Unknown]
  - Intentional overdose [Unknown]

NARRATIVE: CASE EVENT DATE: 20230307
